FAERS Safety Report 8979874 (Version 1)
Quarter: 2012Q4

REPORT INFORMATION
  Report Type: 
  Country: DE (occurrence: DE)
  Receive Date: 20121221
  Receipt Date: 20121221
  Transmission Date: 20130627
  Serious: Yes (Other)
  Sender: FDA-Public Use
  Company Number: PHHY2012DE095491

PATIENT
  Age: 35 Year
  Sex: Female
  Weight: 100 kg

DRUGS (1)
  1. GILENYA [Suspect]
     Indication: MULTIPLE SCLEROSIS
     Dosage: 0.5 mg, daily
     Route: 048
     Dates: start: 20120904

REACTIONS (14)
  - Rhinitis [Unknown]
  - Nasal congestion [Unknown]
  - Dysphagia [Unknown]
  - Hypoaesthesia [Unknown]
  - Mucous membrane disorder [Unknown]
  - Eye disorder [Unknown]
  - Bronchial obstruction [Unknown]
  - Cough [Unknown]
  - Arthralgia [Not Recovered/Not Resolved]
  - Fungal skin infection [Unknown]
  - Multiple sclerosis relapse [Unknown]
  - Gait disturbance [Unknown]
  - Hot flush [Unknown]
  - Vision blurred [Not Recovered/Not Resolved]
